FAERS Safety Report 16212820 (Version 2)
Quarter: 2020Q2

REPORT INFORMATION
  Report Type: Spontaneous
  Country: US (occurrence: US)
  Receive Date: 20190418
  Receipt Date: 20200423
  Transmission Date: 20200713
  Serious: No
  Sender: FDA-Public Use
  Company Number: US-ASTELLAS-2019US009447

PATIENT
  Sex: Male

DRUGS (4)
  1. LEXISCAN [Suspect]
     Active Substance: REGADENOSON
     Indication: PAIN IN JAW
     Dosage: UNK, UNKNOWN FREQ.
     Route: 065
     Dates: start: 20190304
  2. LEXISCAN [Suspect]
     Active Substance: REGADENOSON
     Indication: PAIN IN JAW
     Dosage: UNK, UNKNOWN FREQ.
     Route: 065
     Dates: start: 20190304
  3. LEXISCAN [Suspect]
     Active Substance: REGADENOSON
     Indication: PAIN IN JAW
     Dosage: UNK, UNKNOWN FREQ.
     Route: 065
     Dates: start: 20190304
  4. LEXISCAN [Suspect]
     Active Substance: REGADENOSON
     Indication: PAIN IN JAW
     Dosage: UNK, UNKNOWN FREQ.
     Route: 065
     Dates: start: 20190304

REACTIONS (7)
  - Tremor [Recovered/Resolved]
  - Heart rate decreased [Recovering/Resolving]
  - Incorrect product administration duration [Unknown]
  - Product use in unapproved indication [Unknown]
  - Flushing [Recovered/Resolved]
  - Somnolence [Recovered/Resolved]
  - Dizziness [Recovered/Resolved]

NARRATIVE: CASE EVENT DATE: 20190304
